FAERS Safety Report 5673827-6 (Version None)
Quarter: 2008Q1

REPORT INFORMATION
  Report Type: 
  Country: None (occurrence: None)
  Receive Date: 20080319
  Receipt Date: 20080307
  Transmission Date: 20080703
  Serious: Yes (Hospitalization, Other)
  Sender: FDA-Public Use
  Company Number: US-PFIZER INC-2008023866

PATIENT
  Sex: Male
  Weight: 63.636 kg

DRUGS (3)
  1. CHANTIX [Suspect]
     Indication: SMOKING CESSATION THERAPY
  2. ANTIHYPERTENSIVES [Concomitant]
  3. ASPIRIN [Concomitant]
     Indication: BLOOD DISORDER

REACTIONS (3)
  - HALLUCINATION, VISUAL [None]
  - VASCULAR OPERATION [None]
  - VENOUS OCCLUSION [None]
